FAERS Safety Report 13021730 (Version 3)
Quarter: 2019Q1

REPORT INFORMATION
  Report Type: Spontaneous
  Country: JP (occurrence: JP)
  Receive Date: 20161213
  Receipt Date: 20190302
  Transmission Date: 20190417
  Serious: Yes (Hospitalization, Other)
  Sender: FDA-Public Use
  Company Number: JP-UNITED THERAPEUTICS-UNT-2015-002359

PATIENT
  Age: 81 Year
  Sex: Female
  Weight: 50.8 kg

DRUGS (16)
  1. VOLIBRIS [Concomitant]
     Active Substance: AMBRISENTAN
     Indication: COLLAGEN DISORDER
     Dosage: 5 MG, Q12H
     Route: 048
     Dates: start: 201409
  2. CARELOAD [Concomitant]
     Active Substance: BERAPROST SODIUM
     Indication: COLLAGEN DISORDER
     Dosage: 60 ?G, Q12H
     Route: 048
     Dates: start: 201408, end: 201502
  3. REVATIO [Concomitant]
     Active Substance: SILDENAFIL CITRATE
     Indication: COLLAGEN DISORDER
     Dosage: 20 MG, Q8H
     Route: 048
     Dates: start: 201408
  4. JUVELA N [Concomitant]
     Active Substance: TOCOPHERYL NICOTINATE, D-.ALPHA.
     Indication: PRODUCT USED FOR UNKNOWN INDICATION
     Dosage: 200 MG, Q8H
     Route: 048
  5. TRAMCET [Suspect]
     Active Substance: ACETAMINOPHEN\TRAMADOL
     Indication: PAIN
     Dosage: 1, QID
     Route: 048
     Dates: start: 20150302, end: 20150304
  6. REVATIO [Concomitant]
     Active Substance: SILDENAFIL CITRATE
     Indication: PULMONARY ARTERIAL HYPERTENSION
  7. GASTER [Concomitant]
     Active Substance: FAMOTIDINE
     Indication: CHRONIC GASTRITIS
     Dosage: 10 MG, Q12H
     Route: 048
  8. REMODULIN [Suspect]
     Active Substance: TREPROSTINIL
     Indication: PULMONARY ARTERIAL HYPERTENSION
     Dosage: 0.001 ?G/KG, CONTINUING
     Route: 058
     Dates: start: 20150220, end: 20150405
  9. REMODULIN [Suspect]
     Active Substance: TREPROSTINIL
     Dosage: 0.014 ?G/KG, CONTINUING
     Route: 058
  10. CARELOAD [Concomitant]
     Active Substance: BERAPROST SODIUM
     Indication: PULMONARY ARTERIAL HYPERTENSION
  11. ALFAROL [Concomitant]
     Active Substance: ALFACALCIDOL
     Indication: OSTEOPOROSIS
     Dosage: 0.5 ?G, QD
     Route: 048
  12. LENDORMIN D [Concomitant]
     Active Substance: BROTIZOLAM
     Indication: INSOMNIA
     Dosage: 0.25 MG, QD
     Route: 048
  13. REMODULIN [Suspect]
     Active Substance: TREPROSTINIL
     Indication: COLLAGEN DISORDER
     Dosage: 0.01 ?G/KG, CONTINUING
     Route: 058
  14. REMODULIN [Suspect]
     Active Substance: TREPROSTINIL
     Dosage: 0.0111 ?G/KG, CONTINUING
     Route: 058
  15. REMODULIN [Suspect]
     Active Substance: TREPROSTINIL
     Dosage: 0.012 ?G/KG, CONTINUING
     Route: 058
  16. VOLIBRIS [Concomitant]
     Active Substance: AMBRISENTAN
     Indication: PULMONARY ARTERIAL HYPERTENSION

REACTIONS (13)
  - Orthostatic hypotension [Unknown]
  - Syncope [Recovered/Resolved]
  - Infusion site discharge [Recovering/Resolving]
  - Infusion site pain [Recovered/Resolved]
  - Headache [Recovering/Resolving]
  - Cardiac failure [Recovered/Resolved]
  - Infusion site erythema [Unknown]
  - Infusion site warmth [Unknown]
  - Dizziness [Unknown]
  - Fall [Recovered/Resolved]
  - Pyrexia [Unknown]
  - Infusion site pruritus [Unknown]
  - Infusion site haemorrhage [Unknown]

NARRATIVE: CASE EVENT DATE: 2015
